FAERS Safety Report 4639750-0 (Version None)
Quarter: 2005Q2

REPORT INFORMATION
  Report Type: 
  Country: None (occurrence: None)
  Receive Date: 20050328
  Receipt Date: 20050124
  Transmission Date: 20051028
  Serious: No
  Sender: FDA-Public Use
  Company Number: USA050189003

PATIENT
  Age: 16 Year
  Sex: Male
  Weight: 91 kg

DRUGS (5)
  1. STRATTERA [Suspect]
     Indication: ATTENTION DEFICIT/HYPERACTIVITY DISORDER
     Dosage: 40 MG
     Dates: start: 20050101
  2. ALLEGRA [Concomitant]
  3. IMODIUM ADVANCED [Concomitant]
  4. ASPIRIN [Concomitant]
  5. MARIJUANA [Concomitant]

REACTIONS (4)
  - DIARRHOEA [None]
  - DRUG SCREEN POSITIVE [None]
  - MALAISE [None]
  - VOMITING [None]
